FAERS Safety Report 7048850-X (Version None)
Quarter: 2010Q4

REPORT INFORMATION
  Report Type: 
  Country: None (occurrence: None)
  Receive Date: 20101018
  Receipt Date: 20101007
  Transmission Date: 20110411
  Serious: Yes (Hospitalization)
  Sender: FDA-Public Use
  Company Number: FR-ASTRAZENECA-2010SE47658

PATIENT
  Age: 30291 Day
  Sex: Female

DRUGS (4)
  1. NEXIUM [Suspect]
     Route: 048
     Dates: end: 20100910
  2. PLAVIX [Suspect]
     Route: 048
     Dates: start: 20100701, end: 20100910
  3. LASIX [Suspect]
     Route: 048
     Dates: start: 20100701, end: 20100914
  4. ALTEIS [Suspect]
     Route: 048
     Dates: end: 20100903

REACTIONS (1)
  - AGRANULOCYTOSIS [None]
